FAERS Safety Report 15741120 (Version 3)
Quarter: 2018Q4

REPORT INFORMATION
  Report Type: Spontaneous
  Country: US (occurrence: US)
  Receive Date: 20181219
  Receipt Date: 20181220
  Transmission Date: 20190205
  Serious: No
  Sender: FDA-Public Use
  Company Number: US-SA-2018SA344614

PATIENT
  Sex: Male
  Weight: 118.82 kg

DRUGS (12)
  1. TYLENOL 8HR [Concomitant]
     Active Substance: ACETAMINOPHEN
  2. VITAMIN C ACID [Concomitant]
     Active Substance: ASCORBIC ACID
  3. VITAMIN D [COLECALCIFEROL] [Concomitant]
  4. DUPIXENT [Suspect]
     Active Substance: DUPILUMAB
     Indication: DERMATITIS ATOPIC
     Dosage: 300 MG, QOW
     Route: 058
     Dates: start: 20171208
  5. HYDROCHLOROTHIAZIDE. [Concomitant]
     Active Substance: HYDROCHLOROTHIAZIDE
  6. IRON [Concomitant]
     Active Substance: IRON
  7. NEXIUM 1-2-3 [Concomitant]
     Active Substance: AMOXICILLIN\CLARITHROMYCIN\ESOMEPRAZOLE
  8. TRAZODONE [Concomitant]
     Active Substance: TRAZODONE HYDROCHLORIDE
  9. LOTREL T [Concomitant]
  10. ALLEGRA ALLERGY [Concomitant]
     Active Substance: FEXOFENADINE HYDROCHLORIDE
  11. GLUCOSAMINE + CHONDROITIN COMPLEX [Concomitant]
  12. MULTIVITAMIN (16) [Concomitant]
     Active Substance: VITAMINS

REACTIONS (2)
  - Product dose omission [Unknown]
  - Dermatitis [Recovered/Resolved]
